FAERS Safety Report 13201522 (Version 1)
Quarter: 2017Q1

REPORT INFORMATION
  Report Type: Spontaneous
  Country: FR (occurrence: FR)
  Receive Date: 20170209
  Receipt Date: 20170209
  Transmission Date: 20170428
  Serious: Yes (Other)
  Sender: FDA-Public Use
  Company Number: FR-ACCORD-048000

PATIENT
  Age: 63 Year
  Sex: Female

DRUGS (2)
  1. FLUOROURACIL ACCORD [Suspect]
     Active Substance: FLUOROURACIL
     Indication: COLON CANCER METASTATIC
     Dosage: 636 MG IN ONE SINGLE INTAKE,  RECEIVED FIRST LV5FU2 TREATMENT COURSE WITH REDUCTION OF 37% DOSE
     Route: 040
     Dates: start: 20160727, end: 20160727
  2. CALCIUM FOLINATE/FOLINIC ACID/SODIUM FOLINATE [Concomitant]

REACTIONS (1)
  - Chest discomfort [Recovered/Resolved]

NARRATIVE: CASE EVENT DATE: 20160727
